FAERS Safety Report 5175193-1 (Version None)
Quarter: 2006Q4

REPORT INFORMATION
  Report Type: 
  Country: None (occurrence: None)
  Receive Date: 20061206
  Receipt Date: 20061120
  Transmission Date: 20070319
  Serious: Yes (Disabling)
  Sender: FDA-Public Use
  Company Number: DSA_28258_2006

PATIENT
  Age: 84 Year
  Sex: Female

DRUGS (6)
  1. ENALAPRIL MALEATE [Suspect]
     Dosage: DF PO
     Route: 048
     Dates: start: 20050915
  2. FUROSEMIDE [Suspect]
     Dosage: DF PO
     Route: 048
     Dates: start: 20050915
  3. SOTALOL HYDROCHLORIDE [Suspect]
     Dosage: DF PO
     Route: 048
     Dates: start: 20050915
  4. LANREOTIDE ACETATE [Suspect]
     Indication: HOT FLUSH
     Dosage: DF IM
     Route: 030
     Dates: start: 20051015, end: 20051215
  5. CLOPIDOGREL BISULFATE [Suspect]
     Dosage: DF PO
     Route: 048
     Dates: start: 19970715
  6. ZOLPIDEM TARTRATE [Suspect]
     Dosage: DF PO
     Route: 048

REACTIONS (2)
  - EXOPHTHALMOS [None]
  - MUSCLE HYPERTROPHY [None]
